FAERS Safety Report 21822897 (Version 2)
Quarter: 2023Q1

REPORT INFORMATION
  Report Type: Spontaneous
  Country: IL (occurrence: IL)
  Receive Date: 20230105
  Receipt Date: 20230118
  Transmission Date: 20230417
  Serious: Yes (Hospitalization)
  Sender: FDA-Public Use
  Company Number: IL-TEVAIL-2022-IL-2842208

PATIENT
  Age: 17 Year
  Sex: Male

DRUGS (2)
  1. METHOTREXATE [Suspect]
     Active Substance: METHOTREXATE
     Indication: Crohn^s disease
     Dosage: 1.4286 MILLIGRAM DAILY;
     Route: 065
  2. INFLIXIMAB [Suspect]
     Active Substance: INFLIXIMAB
     Indication: Crohn^s disease
     Dosage: .2 MG/KG DAILY;
     Route: 065

REACTIONS (1)
  - Epstein Barr virus positive mucocutaneous ulcer [Recovered/Resolved]
